FAERS Safety Report 25598574 (Version 1)
Quarter: 2025Q3

REPORT INFORMATION
  Report Type: Spontaneous
  Country: CN (occurrence: CN)
  Receive Date: 20250723
  Receipt Date: 20250723
  Transmission Date: 20251020
  Serious: Yes (Hospitalization)
  Sender: SHENZHEN TECHDOW PHARMACEUTICAL
  Company Number: CN-adr44030518216-HPR2025000397

PATIENT
  Age: 89 Year
  Sex: Male
  Weight: 40 kg

DRUGS (2)
  1. ENOXAPARIN SODIUM [Suspect]
     Active Substance: ENOXAPARIN SODIUM
     Indication: Anticoagulant therapy
     Dosage: 4000IU,QD
     Dates: start: 20250627, end: 20250629
  2. CEFOPERAZONE SODIUM\SULBACTAM SODIUM [Suspect]
     Active Substance: CEFOPERAZONE SODIUM\SULBACTAM SODIUM
     Indication: Chronic obstructive pulmonary disease
     Dates: start: 20250625, end: 20250629

REACTIONS (3)
  - Prothrombin time abnormal [Recovering/Resolving]
  - International normalised ratio increased [Recovering/Resolving]
  - Platelet count decreased [Recovering/Resolving]

NARRATIVE: CASE EVENT DATE: 20250629
